FAERS Safety Report 4415648-8 (Version None)
Quarter: 2004Q2

REPORT INFORMATION
  Report Type: 
  Country: None (occurrence: None)
  Receive Date: 20040621
  Receipt Date: 20031209
  Transmission Date: 20050107
  Serious: Yes (Death)
  Sender: FDA-Public Use
  Company Number: USA-2003-0011884

PATIENT
  Age: 68 Year
  Sex: Male
  Weight: 71.7 kg

DRUGS (10)
  1. OXYCODONE HCL [Suspect]
  2. THEOPHYLLINE [Suspect]
  3. SERTRALINE HYDROCHLORIDE [Suspect]
  4. PROPOXYPHENE HCL [Suspect]
  5. DIAZEPAM [Concomitant]
  6. ETHANOL (ETHANOL) [Suspect]
  7. OXAZEPAM [Suspect]
  8. TEMAZEPAM [Suspect]
  9. ACETAMINOPHEN [Suspect]
  10. SERTRALINE HYDROCHLORIDE [Suspect]

REACTIONS (2)
  - ACCIDENTAL OVERDOSE [None]
  - MULTIPLE DRUG OVERDOSE [None]
